FAERS Safety Report 18917364 (Version 1)
Quarter: 2021Q1

REPORT INFORMATION
  Report Type: Spontaneous
  Country: US (occurrence: US)
  Receive Date: 20210219
  Receipt Date: 20210219
  Transmission Date: 20210420
  Serious: No
  Sender: FDA-Public Use
  Company Number: US-SA-2021SA055648

PATIENT
  Sex: Male

DRUGS (4)
  1. DUPIXENT [Suspect]
     Active Substance: DUPILUMAB
     Indication: ASTHMA
     Dosage: 300 MG, QOW
     Dates: start: 2020
  2. SINGULAIR [Concomitant]
     Active Substance: MONTELUKAST SODIUM
     Dosage: UNK
  3. TESTOSTERONE. [Concomitant]
     Active Substance: TESTOSTERONE
     Dosage: UNK
  4. TRELEGY ELLIPTA [Concomitant]
     Active Substance: FLUTICASONE FUROATE\UMECLIDINIUM BROMIDE\VILANTEROL TRIFENATATE
     Dosage: UNK

REACTIONS (16)
  - Emotional disorder [Unknown]
  - Skin fissures [Unknown]
  - Condition aggravated [Unknown]
  - Vision blurred [Unknown]
  - Dry skin [Unknown]
  - Peripheral swelling [Unknown]
  - Adverse drug reaction [Unknown]
  - Erythema [Unknown]
  - Product dose omission issue [Unknown]
  - Skin exfoliation [Unknown]
  - Skin swelling [Unknown]
  - Rash [Unknown]
  - Axillary mass [Unknown]
  - Testicular pain [Unknown]
  - Product use issue [Unknown]
  - Cyst [Unknown]

NARRATIVE: CASE EVENT DATE: 2020
